FAERS Safety Report 8488689-1 (Version None)
Quarter: 2012Q3

REPORT INFORMATION
  Report Type: 
  Country: None (occurrence: None)
  Receive Date: 20120705
  Receipt Date: 20120629
  Transmission Date: 20120928
  Serious: Yes (Other)
  Sender: FDA-Public Use
  Company Number: US-AMGEN-USASP2012040531

PATIENT
  Sex: Female

DRUGS (1)
  1. NPLATE [Suspect]
     Indication: IDIOPATHIC THROMBOCYTOPENIC PURPURA
     Dosage: 0.7 ML, QWK
     Dates: end: 20120310

REACTIONS (4)
  - THERAPEUTIC RESPONSE DECREASED [None]
  - INJECTION SITE EXTRAVASATION [None]
  - BLOOD SMEAR TEST ABNORMAL [None]
  - UNDERDOSE [None]
